FAERS Safety Report 6075437-8 (Version None)
Quarter: 2009Q1

REPORT INFORMATION
  Report Type: 
  Country: None (occurrence: None)
  Receive Date: 20090212
  Receipt Date: 20090206
  Transmission Date: 20090719
  Serious: Yes (Hospitalization)
  Sender: FDA-Public Use
  Company Number: A0718986A

PATIENT
  Age: 51 Year
  Sex: Female
  Weight: 89.5 kg

DRUGS (5)
  1. AVANDIA [Suspect]
     Dosage: 8MG PER DAY
     Route: 048
     Dates: start: 20000201, end: 20070101
  2. ACTOS [Concomitant]
     Dates: start: 20010101
  3. METFORMIN HCL [Concomitant]
     Dates: start: 20010101
  4. STARLIX [Concomitant]
     Dates: start: 20031101
  5. PREMPRO [Concomitant]

REACTIONS (1)
  - MYOCARDIAL INFARCTION [None]
